FAERS Safety Report 9421380 (Version 2)
Quarter: 2014Q1

REPORT INFORMATION
  Report Type: Spontaneous
  Country: US (occurrence: US)
  Receive Date: 20130725
  Receipt Date: 20140313
  Transmission Date: 20141002
  Serious: Yes (Other)
  Sender: FDA-Public Use
  Company Number: US-TMC-CABO-13002916

PATIENT
  Age: 46 Year
  Sex: Male
  Weight: 87.54 kg

DRUGS (9)
  1. COMETRIQ [Suspect]
     Indication: THYROID CANCER
     Dosage: 60 MG, QD
     Route: 048
     Dates: start: 20130601, end: 201310
  2. SYNTHROID [Concomitant]
  3. CALCITRIOL [Concomitant]
  4. MAXZIDE [Concomitant]
  5. VICODIN [Concomitant]
  6. POTASSIUM [Concomitant]
  7. ZANTAC [Concomitant]
  8. ZOMETA [Concomitant]
  9. PANTOPRAZOLE [Concomitant]

REACTIONS (13)
  - Syncope [Recovered/Resolved]
  - Dyspnoea [Unknown]
  - Hyperhidrosis [Unknown]
  - Skin ulcer [Unknown]
  - Oral mucosal blistering [Unknown]
  - Stomatitis [Unknown]
  - Pain in extremity [Unknown]
  - Nausea [Recovering/Resolving]
  - Blister [Recovering/Resolving]
  - Decreased appetite [Not Recovered/Not Resolved]
  - Weight decreased [Unknown]
  - Diarrhoea [Unknown]
  - Fatigue [Unknown]
